FAERS Safety Report 16600460 (Version 1)
Quarter: 2019Q3

REPORT INFORMATION
  Report Type: Spontaneous
  Country: DE (occurrence: DE)
  Receive Date: 20190720
  Receipt Date: 20190720
  Transmission Date: 20191004
  Serious: Yes (Death, Hospitalization)
  Sender: FDA-Public Use
  Company Number: DE-ACCORD-138984

PATIENT
  Age: 58 Year
  Sex: Male
  Weight: 63 kg

DRUGS (15)
  1. MIRTAZAPINE. [Concomitant]
     Active Substance: MIRTAZAPINE
     Dosage: 15 MG, 0-0-1-0, TABLET
     Route: 048
  2. FOLIC ACID. [Concomitant]
     Active Substance: FOLIC ACID
     Dosage: 5 MG, 1-0-0-0, TABLET
     Route: 048
  3. PEMETREXED. [Suspect]
     Active Substance: PEMETREXED
     Indication: PRODUCT USED FOR UNKNOWN INDICATION
     Dosage: 920 MG, ACCORDING TO THE SCHEDULE, MOST RECENTLY ON 22.11.2017, SOLUTION FOR INJECTION / INFUSION
     Route: 042
  4. METAMIZOLE SODIUM [Concomitant]
     Active Substance: METAMIZOLE SODIUM
     Dosage: 500 MG, 2-2-2-2, TABLET
     Route: 048
  5. ASPIRIN. [Concomitant]
     Active Substance: ASPIRIN
     Dosage: 100 MG, 1-0-0-0, TABLET
     Route: 048
  6. PANTOPRAZOLE [Concomitant]
     Active Substance: PANTOPRAZOLE
     Dosage: 40 MG, 1-0-0-0, TABLET
     Route: 048
  7. GABAPENTIN. [Concomitant]
     Active Substance: GABAPENTIN
     Dosage: 100 MG, 1-1-1-0, TABLET
     Route: 048
  8. ANAGRELIDE/ANAGRELIDE HYDROCHLORIDE [Concomitant]
     Dosage: 0.5 MG, 1-1-1-0, TABLET
     Route: 048
  9. CALCIMAGON D3 [Concomitant]
     Active Substance: CALCIUM\CHOLECALCIFEROL
     Dosage: 00 / 400 MG / I.U., 1-0-0-0, CHEWABLE TABLETS, STRENGTH: 500MG/400 I.U.
     Route: 048
  10. CLEXANE [Concomitant]
     Active Substance: ENOXAPARIN SODIUM
     Dosage: 0.4 ML, 0-0-1-0, SOLUTION FOR INJECTION / INFUSION, STRENGTH: 100MG
     Route: 058
  11. HYDROXYCARBAMIDE [Concomitant]
     Active Substance: HYDROXYUREA
     Dosage: 500 MG, 1-0-1-0, TABLET
     Route: 048
  12. CARBOPLATIN. [Suspect]
     Active Substance: CARBOPLATIN
     Indication: PRODUCT USED FOR UNKNOWN INDICATION
     Dosage: 367.90 MG, ACCORDING TO SCHEME, MOST RECENTLY ON 22.11.2017, SOLUTION FOR INJECTION / INFUSION
     Route: 042
  13. LOPERAMIDE [Concomitant]
     Active Substance: LOPERAMIDE
     Dosage: 2 MG, NEED, TABLETS
     Route: 048
  14. FENTANYL. [Concomitant]
     Active Substance: FENTANYL
     Dosage: 25 UG, EVERY 3 D, PATCH TRANSDERMALLY
     Route: 062
  15. ULTIBRO BREEZHALER [Concomitant]
     Active Substance: GLYCOPYRRONIUM\INDACATEROL
     Dosage: 85/43 UG, 1-0-0-0, METERED DOSE INHALER
     Route: 055

REACTIONS (4)
  - General physical health deterioration [Unknown]
  - Fatigue [Unknown]
  - Diarrhoea [Unknown]
  - Weight decreased [Unknown]
